FAERS Safety Report 10687658 (Version 1)
Quarter: 2014Q4

REPORT INFORMATION
  Report Type: Spontaneous
  Country: US (occurrence: None)
  Receive Date: 20141231
  Receipt Date: 20141231
  Transmission Date: 20150529
  Serious: Yes (Other)
  Sender: FDA-Public Use
  Company Number: None

PATIENT
  Age: 64 Year
  Sex: Female
  Weight: 97.98 kg

DRUGS (1)
  1. GLIPIZIDE ER [Suspect]
     Active Substance: GLIPIZIDE
     Indication: DIABETES MELLITUS
     Route: 048
     Dates: start: 20141222, end: 20141223

REACTIONS (3)
  - Tinnitus [None]
  - Product substitution issue [None]
  - Blood glucose decreased [None]

NARRATIVE: CASE EVENT DATE: 20141222
